FAERS Safety Report 10866582 (Version 1)
Quarter: 2015Q1

REPORT INFORMATION
  Report Type: Spontaneous
  Country: US (occurrence: None)
  Receive Date: 20150220
  Receipt Date: 20150220
  Transmission Date: 20150721
  Serious: Yes (Death)
  Sender: FDA-Public Use
  Company Number: 2015020037

PATIENT
  Age: 79 Year
  Sex: Male

DRUGS (10)
  1. FEBURIC (FEBUXOSTAT) [Suspect]
     Active Substance: FEBUXOSTAT
     Indication: HYPERURICAEMIA
     Route: 048
     Dates: start: 201202
  2. OLMETEC (OLMESARTAN MEDOXMIL) [Suspect]
     Active Substance: OLMESARTAN MEDOXOMIL
     Indication: CARDIAC FAILURE
     Route: 048
     Dates: start: 201202
  3. LUPRAC [Suspect]
     Active Substance: TORSEMIDE
     Indication: CARDIAC FAILURE
     Route: 048
     Dates: start: 20131017
  4. ULCERLMIN (SUCRALFATE) [Suspect]
     Active Substance: SUCRALFATE
     Indication: GASTRITIS PROPHYLAXIS
     Dosage: 3 GM (2 GM, 3 IN 1 D), ORAL
     Route: 048
     Dates: start: 20140703
  5. PIMBOBENDAN (PIMOBENDAN) [Suspect]
     Active Substance: PIMOBENDAN
     Indication: CARDIAC FAILURE
     Route: 048
     Dates: start: 201202
  6. MEXILETINE [Suspect]
     Active Substance: MEXILETINE
     Indication: VENTRICULAR EXTRASYSTOLES
     Dosage: 450 MG (150 MG,  3 IN 1 D), ORAL
     Route: 048
     Dates: start: 201202
  7. EPLERENONE (EPELERENONE) [Suspect]
     Active Substance: EPLERENONE
     Indication: CARDIAC FAILURE
     Route: 048
     Dates: start: 20121220, end: 20130117
  8. ARTIST (CARVEDILOL) (CARVEDILOL) [Concomitant]
     Active Substance: CARVEDILOL
  9. ONEALFA [Suspect]
     Active Substance: ALFACALCIDOL
     Indication: OSTEOPOROSIS
     Dosage: 0.5 MCG (0.5 MCG, 1 IN 1 D), ORAL
     Route: 048
     Dates: start: 201202
  10. K SUPPLY (POTASSIUM CHLORIDE) [Suspect]
     Active Substance: POTASSIUM CHLORIDE
     Indication: MINERAL SUPPLEMENTATION
     Dosage: 600 MG (300 MG, 2 IN 1 D), ORAL
     Route: 048
     Dates: start: 20141030

REACTIONS (1)
  - Sudden cardiac death [None]

NARRATIVE: CASE EVENT DATE: 20141111
